FAERS Safety Report 5537591-3 (Version None)
Quarter: 2007Q4

REPORT INFORMATION
  Report Type: 
  Country: None (occurrence: None)
  Receive Date: 20071207
  Receipt Date: 20071130
  Transmission Date: 20080405
  Serious: Yes (Other)
  Sender: FDA-Public Use
  Company Number: US-AMGEN-US254802

PATIENT
  Sex: Female

DRUGS (13)
  1. EPOGEN [Suspect]
     Indication: DIALYSIS
     Route: 042
     Dates: start: 20000512
  2. ZEMPLAR [Concomitant]
  3. DARVOCET [Concomitant]
  4. RENAGEL [Concomitant]
  5. TESSALON [Concomitant]
  6. RENAX [Concomitant]
  7. COREG [Concomitant]
  8. FLONASE [Concomitant]
  9. CLARINEX [Concomitant]
  10. ATARAX [Concomitant]
  11. HYDROCODONE BITARTRATE [Concomitant]
  12. SENSIPAR [Concomitant]
     Route: 065
  13. LEVOCARNITINE [Concomitant]

REACTIONS (1)
  - APLASIA PURE RED CELL [None]
